FAERS Safety Report 8524075-3 (Version None)
Quarter: 2012Q3

REPORT INFORMATION
  Report Type: 
  Country: None (occurrence: None)
  Receive Date: 20120720
  Receipt Date: 20120712
  Transmission Date: 20120928
  Serious: Yes (Hospitalization)
  Sender: FDA-Public Use
  Company Number: US-JNJFOC-20120707009

PATIENT
  Age: 54 Year
  Sex: Female

DRUGS (3)
  1. REMICADE [Suspect]
     Indication: COLITIS ULCERATIVE
     Route: 042
     Dates: start: 20120101
  2. REMICADE [Suspect]
     Route: 042
     Dates: start: 20120401
  3. REMICADE [Suspect]
     Dosage: THIRD DOSE
     Route: 042
     Dates: start: 20120101

REACTIONS (2)
  - ARTHRITIS INFECTIVE [None]
  - ALOPECIA [None]
